FAERS Safety Report 25377192 (Version 1)
Quarter: 2025Q2

REPORT INFORMATION
  Report Type: Spontaneous
  Country: US (occurrence: US)
  Receive Date: 20250530
  Receipt Date: 20250530
  Transmission Date: 20250717
  Serious: No
  Sender: INDOCO REMEDIES LIMITED
  Company Number: US-INDOCO-IND-2025-US-SPO-00588

PATIENT
  Age: 86 Year
  Sex: Female
  Weight: 51.7 kg

DRUGS (4)
  1. BRIMONIDINE TARTRATE [Suspect]
     Active Substance: BRIMONIDINE TARTRATE
     Indication: Intraocular pressure increased
     Dosage: FOUR TIMES A DAY (MORNING BETWEEN 6:15 AM TO 6:30 AM, 11:30 AM, 4:30 PM, AND 9:30 PM AT NIGHT)
     Route: 065
  2. DORZOLAMIDE [Suspect]
     Active Substance: DORZOLAMIDE
     Indication: Intraocular pressure increased
     Dosage: FOUR TIMES A DAY (MORNING BETWEEN 6:15 AM TO 6:30 AM, 11:30 AM, 4:30 PM, AND 9:30 PM AT NIGHT)
     Route: 065
  3. LATANOPROST [Suspect]
     Active Substance: LATANOPROST
     Indication: Intraocular pressure increased
     Dosage: FOUR TIMES A DAY (MORNING BETWEEN 6:15 AM TO 6:30 AM, 11:30 AM, 4:30 PM, AND 9:30 PM AT NIGHT)
     Route: 065
  4. KETOROLAC TROMETHAMINE [Concomitant]
     Active Substance: KETOROLAC TROMETHAMINE
     Indication: Inflammation
     Dosage: FOUR TIMES A DAY
     Route: 065
     Dates: start: 2023

REACTIONS (1)
  - Drug ineffective [Unknown]
